FAERS Safety Report 10338312 (Version 3)
Quarter: 2014Q3

REPORT INFORMATION
  Report Type: Spontaneous
  Country: JP (occurrence: JP)
  Receive Date: 20140724
  Receipt Date: 20140812
  Transmission Date: 20150326
  Serious: Yes (Disabling, Other)
  Sender: FDA-Public Use
  Company Number: JP-GE HEALTHCARE MEDICAL DIAGNOSTICS-OMPQ-NO-0903S-0225

PATIENT
  Age: 81 Year
  Sex: Male
  Weight: 66 kg

DRUGS (4)
  1. OMNIPAQUE [Suspect]
     Active Substance: IOHEXOL
     Indication: PRODUCT USED FOR UNKNOWN INDICATION
     Route: 013
     Dates: start: 20090324, end: 20090324
  2. HEPARIN [Concomitant]
     Active Substance: HEPARIN SODIUM
     Dates: start: 20090324, end: 20090324
  3. OMNIPAQUE [Suspect]
     Active Substance: IOHEXOL
     Indication: DIAGNOSTIC PROCEDURE
  4. PROTAMINE [Concomitant]
     Active Substance: PROTAMINE
     Dates: start: 20090324, end: 20090324

REACTIONS (3)
  - Hypoxic-ischaemic encephalopathy [Recovered/Resolved with Sequelae]
  - Cerebral disorder [Recovered/Resolved with Sequelae]
  - Anaphylactoid shock [Recovered/Resolved with Sequelae]

NARRATIVE: CASE EVENT DATE: 20090324
